FAERS Safety Report 21762380 (Version 1)
Quarter: 2022Q4

REPORT INFORMATION
  Report Type: Spontaneous
  Country: US (occurrence: None)
  Receive Date: 20221221
  Receipt Date: 20221221
  Transmission Date: 20230113
  Serious: Yes (Hospitalization, Other)
  Sender: FDA-Public Use
  Company Number: 2022A406393

PATIENT
  Sex: Male
  Weight: 113.4 kg

DRUGS (1)
  1. LYNPARZA [Suspect]
     Active Substance: OLAPARIB
     Indication: Prostate cancer
     Route: 048

REACTIONS (4)
  - Pulmonary embolism [Unknown]
  - Pancreatitis acute [Unknown]
  - Prostatic specific antigen abnormal [Unknown]
  - Overweight [Unknown]
